FAERS Safety Report 8958738 (Version 1)
Quarter: 2012Q4

REPORT INFORMATION
  Report Type: 
  Country: US (occurrence: None)
  Receive Date: 20121206
  Receipt Date: 20121206
  Transmission Date: 20130627
  Serious: Yes (Hospitalization)
  Sender: FDA-Public Use
  Company Number: None

PATIENT
  Sex: Female
  Weight: 61.2 kg

DRUGS (2)
  1. CARBOPLATIN [Suspect]
  2. PACLITAXEL (TAXOL) [Suspect]

REACTIONS (6)
  - Diarrhoea [None]
  - Vomiting [None]
  - Malaise [None]
  - Dehydration [None]
  - White blood cell count decreased [None]
  - Neutrophil count decreased [None]
